FAERS Safety Report 9516624 (Version 1)
Quarter: 2013Q3

REPORT INFORMATION
  Report Type: Spontaneous
  Country: FR (occurrence: FR)
  Receive Date: 20130911
  Receipt Date: 20130911
  Transmission Date: 20140515
  Serious: Yes (Hospitalization, Congenital Anomaly)
  Sender: FDA-Public Use
  Company Number: FR-ASTRAZENECA-2013SE67826

PATIENT
  Age: 0 Week
  Sex: Female
  Weight: 2.4 kg

DRUGS (12)
  1. INEXIUM [Suspect]
     Indication: GASTROOESOPHAGEAL REFLUX DISEASE
     Dosage: START DATE: AT 8 WEEKS OF AMENORRHEA.
     Route: 064
     Dates: end: 20130627
  2. SERTRALINE [Suspect]
     Dosage: MOTHER DOSAGE: 50 MG EVERY DAY (START:AT 8 WEEKS OF AMENORRHEA)
     Route: 064
     Dates: end: 20130627
  3. XANAX [Suspect]
     Dosage: MOTHER DOSAGE: }10 X 0.5 MG EVERY DAY
     Route: 064
  4. ZOPICLONE [Suspect]
     Dosage: MOTHER DOSAGE: 15 MG EVERY DAY (START: AT 0 WEEKS OF AMENORRHEA; STOP: AT 8 WEEKS OF AMENORRHEA)
     Route: 064
  5. ZOPICLONE [Suspect]
     Dosage: MOTHER DOSAGE: 7.5 MG EVERY DAY (START: AT 8 WEEKS OF AMENORRHEA)
     Route: 064
     Dates: end: 20130627
  6. SERESTA [Suspect]
     Dosage: MOTHER DOSAGE: 60 MG EVERY DAY (START: AT THE END OF PREGNANCY)
     Route: 064
     Dates: end: 20130627
  7. LEVOTHYROX [Suspect]
     Dosage: DURING ALL THE PREGNANCY.
     Route: 064
     Dates: end: 20130627
  8. INSULINE [Suspect]
     Route: 064
     Dates: end: 20130627
  9. TERCIAN [Concomitant]
     Route: 064
  10. TERCIAN [Concomitant]
     Route: 064
  11. CITALOPRAM [Concomitant]
     Dosage: START: 0 WEEKS OF AMENORRHEA; STOP: 8 WEEKS OF AMENORRHEA.
     Route: 064
  12. PANTOPRAZOLE [Concomitant]
     Indication: GASTROOESOPHAGEAL REFLUX DISEASE
     Dosage: START: 0 WEEKS OF AMENORRHEA; STOP: 8 WEEKS OF AMENORRHEA.
     Route: 064

REACTIONS (5)
  - Foetal growth restriction [Recovering/Resolving]
  - Hypoglycaemia neonatal [Recovered/Resolved]
  - Agitation neonatal [Recovered/Resolved]
  - Apnoea neonatal [Recovered/Resolved]
  - Foetal arrhythmia [Unknown]
